FAERS Safety Report 5082431-2 (Version None)
Quarter: 2006Q3

REPORT INFORMATION
  Report Type: 
  Country: None (occurrence: None)
  Receive Date: 20060817
  Receipt Date: 20060804
  Transmission Date: 20061208
  Serious: Yes (Other)
  Sender: FDA-Public Use
  Company Number: FR-GLAXOSMITHKLINE-B0434364A

PATIENT
  Age: 75 Year
  Sex: Female

DRUGS (4)
  1. DEROXAT [Suspect]
     Indication: BIPOLAR DISORDER
     Dosage: 20MG PER DAY
     Route: 048
     Dates: start: 20060711
  2. SERESTA [Concomitant]
     Indication: BIPOLAR DISORDER
     Dosage: 20MG PER DAY
     Route: 048
  3. PRAZEPAM [Concomitant]
     Indication: BIPOLAR DISORDER
     Dosage: 10MG PER DAY
     Route: 048
  4. TERALITHE [Concomitant]
     Indication: BIPOLAR DISORDER
     Dosage: 375MG PER DAY
     Route: 048

REACTIONS (1)
  - PURPURA NON-THROMBOCYTOPENIC [None]
